FAERS Safety Report 5101474-3 (Version None)
Quarter: 2006Q3

REPORT INFORMATION
  Report Type: 
  Country: None (occurrence: None)
  Receive Date: 20060906
  Receipt Date: 20060823
  Transmission Date: 20061208
  Serious: Yes (Hospitalization)
  Sender: FDA-Public Use
  Company Number: 2006103370

PATIENT
  Age: 51 Year
  Sex: Female

DRUGS (9)
  1. AMLODIPINE [Suspect]
     Indication: DRUG USE FOR UNKNOWN INDICATION
     Dosage: 5 MG (5 MG, 1 IN 1 D), ORAL
     Route: 048
  2. RAPAMUNE [Suspect]
     Indication: DRUG USE FOR UNKNOWN INDICATION
     Dosage: 1 MG (UNKNOWN), ORAL
     Route: 048
     Dates: end: 20051212
  3. RANITIDINE HCL [Suspect]
     Indication: DRUG USE FOR UNKNOWN INDICATION
     Dosage: 150 MG (150 MG, 1 IN 1 D), ORAL
     Route: 048
  4. PREDNISONE TAB [Suspect]
     Indication: DRUG USE FOR UNKNOWN INDICATION
     Dosage: 2 MG (5 MG, UNKNOWN), ORAL
     Route: 048
     Dates: start: 20051101
  5. VALACYCLOVIR [Suspect]
     Indication: DRUG USE FOR UNKNOWN INDICATION
     Dosage: 1000 MG (500 MG, 2 IN 1 D), ORAL
     Route: 048
     Dates: start: 20051101
  6. PROGRAF [Suspect]
     Indication: DRUG USE FOR UNKNOWN INDICATION
     Dosage: 4 MG (2 MG, 2 IN 1 D), ORAL
     Route: 048
     Dates: start: 20051101
  7. XANAX [Concomitant]
  8. ARANESP [Concomitant]
  9. EUCALCIC (CALCIUM CARBONATE) [Concomitant]

REACTIONS (2)
  - DEEP VEIN THROMBOSIS [None]
  - LYMPHOCELE [None]
